FAERS Safety Report 24738854 (Version 1)
Quarter: 2024Q4

REPORT INFORMATION
  Report Type: Spontaneous
  Country: GB (occurrence: GB)
  Receive Date: 20241216
  Receipt Date: 20241216
  Transmission Date: 20250115
  Serious: Yes (Other)
  Sender: MYLAN
  Company Number: None

PATIENT
  Age: 24 Year
  Sex: Female

DRUGS (1)
  1. DOXYCYCLINE [Suspect]
     Active Substance: DOXYCYCLINE
     Indication: Malaria prophylaxis
     Dosage: UNK
     Route: 065

REACTIONS (3)
  - Dyspepsia [Recovering/Resolving]
  - Gastrooesophageal reflux disease [Recovering/Resolving]
  - Medication error [Unknown]
